FAERS Safety Report 5207775-2 (Version None)
Quarter: 2006Q4

REPORT INFORMATION
  Report Type: 
  Country: None (occurrence: None)
  Receive Date: 20061030
  Receipt Date: 20060807
  Transmission Date: 20070319
  Serious: No
  Sender: FDA-Public Use
  Company Number: 255891

PATIENT
  Age: 80 Year
  Sex: Female
  Weight: 65.8 kg

DRUGS (3)
  1. LEVEMIR [Suspect]
     Indication: INSULIN-REQUIRING TYPE II DIABETES MELLITUS
     Dosage: 34 IU, QD AT H.S., SUBCUTANEOUS
     Route: 058
     Dates: start: 20060601
  2. NOVOLOG [Suspect]
     Indication: INSULIN-REQUIRING TYPE II DIABETES MELLITUS
     Dosage: 32 IU, TID, SUBCUTANEOUS
     Route: 058
     Dates: start: 20060601
  3. NOVOFINE 30 (NEEDLE) [Concomitant]

REACTIONS (2)
  - BLOOD GLUCOSE INCREASED [None]
  - INJECTION SITE BRUISING [None]
